FAERS Safety Report 14893172 (Version 1)
Quarter: 2018Q2

REPORT INFORMATION
  Report Type: Spontaneous
  Country: US (occurrence: US)
  Receive Date: 20180426
  Receipt Date: 20180426
  Transmission Date: 20180711
  Serious: No
  Sender: FDA-Public Use
  Company Number: None

PATIENT
  Age: 44 Year
  Sex: Male

DRUGS (1)
  1. TRUVADA [Suspect]
     Active Substance: EMTRICITABINE\TENOFOVIR DISOPROXIL FUMARATE
     Indication: HIV INFECTION
     Dosage: 200/30 DAILY BY MOUTH
     Route: 048
     Dates: start: 20160504

REACTIONS (3)
  - Cardiac disorder [None]
  - Feeling cold [None]
  - Muscle spasms [None]

NARRATIVE: CASE EVENT DATE: 20180123
